FAERS Safety Report 7365925-6 (Version None)
Quarter: 2011Q1

REPORT INFORMATION
  Report Type: 
  Country: None (occurrence: None)
  Receive Date: 20110322
  Receipt Date: 20100917
  Transmission Date: 20110831
  Serious: Yes (Hospitalization, Other)
  Sender: FDA-Public Use
  Company Number: US-BAYER-201026698NA

PATIENT
  Sex: Female
  Weight: 52 kg

DRUGS (5)
  1. YAZ [Suspect]
     Indication: CONTRACEPTION
     Dosage: UNK
     Route: 048
  2. HYDROCODONE BITARTRATE [Concomitant]
  3. YASMIN [Suspect]
     Indication: CONTRACEPTION
     Dosage: UNK
     Dates: start: 20031001, end: 20040501
  4. NABUMETONE [Concomitant]
     Dosage: UNK
     Dates: start: 20040330
  5. IBUPROFEN [Concomitant]

REACTIONS (7)
  - BACK PAIN [None]
  - CONSTIPATION [None]
  - DYSPNOEA [None]
  - DYSPNOEA EXERTIONAL [None]
  - PAINFUL RESPIRATION [None]
  - COUGH [None]
  - PULMONARY EMBOLISM [None]
